FAERS Safety Report 7631451-X (Version None)
Quarter: 2011Q3

REPORT INFORMATION
  Report Type: 
  Country: None (occurrence: None)
  Receive Date: 20110725
  Receipt Date: 20110712
  Transmission Date: 20111222
  Serious: Yes (Hospitalization, Other)
  Sender: FDA-Public Use
  Company Number: CA-ELI_LILLY_AND_COMPANY-CA201107003038

PATIENT
  Sex: Female

DRUGS (9)
  1. DALMANE [Concomitant]
  2. ATIVAN [Concomitant]
  3. ZYPREXA [Suspect]
     Indication: SCHIZOAFFECTIVE DISORDER
     Dosage: 5 MG, EACH EVENING
     Dates: start: 20011009
  4. ZYPREXA ZYDIS [Suspect]
     Indication: SCHIZOAFFECTIVE DISORDER
     Dosage: 10 MG, UNK
  5. VALIUM [Concomitant]
  6. ZYPREXA [Suspect]
     Dosage: 2.5 MG, EACH EVENING
  7. ZYPREXA [Suspect]
     Dosage: 7.5 MG, EACH EVENING
  8. VALPROIC ACID [Concomitant]
  9. NORVASC [Concomitant]

REACTIONS (18)
  - ANAEMIA [None]
  - TACHYCARDIA [None]
  - GASTROINTESTINAL HAEMORRHAGE [None]
  - PSEUDOCYST [None]
  - THROMBOCYTOSIS [None]
  - URINARY TRACT INFECTION [None]
  - CARDIAC MURMUR [None]
  - PNEUMONIA [None]
  - HEPATIC STEATOSIS [None]
  - DYSLIPIDAEMIA [None]
  - ATELECTASIS [None]
  - METABOLIC ALKALOSIS [None]
  - BRONCHOSPASM [None]
  - DIABETES MELLITUS [None]
  - RESPIRATORY FAILURE [None]
  - PANCREATITIS NECROTISING [None]
  - PULMONARY EMBOLISM [None]
  - ILEUS [None]
